FAERS Safety Report 17570578 (Version 1)
Quarter: 2020Q1

REPORT INFORMATION
  Report Type: Spontaneous
  Country: RU (occurrence: RU)
  Receive Date: 20200323
  Receipt Date: 20200323
  Transmission Date: 20200409
  Serious: Yes (Other)
  Sender: FDA-Public Use
  Company Number: RU-UCBSA-2020011740

PATIENT
  Sex: Female
  Weight: 43 kg

DRUGS (3)
  1. BRIVIACT [Suspect]
     Active Substance: BRIVARACETAM
     Indication: PARTIAL SEIZURES
     Dosage: 25 MILLIGRAM, 2X/DAY (BID)
     Dates: start: 202002, end: 2020
  2. TEGRETOL [Concomitant]
     Active Substance: CARBAMAZEPINE
     Indication: PARTIAL SEIZURES
     Dosage: UNK
  3. FYCOMPA [Concomitant]
     Active Substance: PERAMPANEL
     Indication: PARTIAL SEIZURES

REACTIONS (2)
  - Aggression [Unknown]
  - Partial seizures [Unknown]

NARRATIVE: CASE EVENT DATE: 2020
